FAERS Safety Report 14985558 (Version 1)
Quarter: 2018Q2

REPORT INFORMATION
  Report Type: Spontaneous
  Country: AU (occurrence: AU)
  Receive Date: 20180607
  Receipt Date: 20180607
  Transmission Date: 20180711
  Serious: Yes (Other)
  Sender: FDA-Public Use
  Company Number: PHHY2018AU012399

PATIENT
  Age: 44 Year
  Sex: Female

DRUGS (1)
  1. GILENYA [Suspect]
     Active Substance: FINGOLIMOD HYDROCHLORIDE
     Indication: PRODUCT USED FOR UNKNOWN INDICATION
     Dosage: UNK
     Route: 065
     Dates: start: 20130201

REACTIONS (6)
  - Tumour marker increased [Unknown]
  - Ovarian mass [Unknown]
  - Ovarian endometrioid carcinoma [Unknown]
  - Chest pain [Unknown]
  - Malignant ascites [Unknown]
  - Adnexa uteri mass [Unknown]

NARRATIVE: CASE EVENT DATE: 201802
